FAERS Safety Report 13521762 (Version 4)
Quarter: 2018Q3

REPORT INFORMATION
  Report Type: Report from Study
  Country: IT (occurrence: IT)
  Receive Date: 20170508
  Receipt Date: 20180703
  Transmission Date: 20181010
  Serious: Yes (Other)
  Sender: FDA-Public Use
  Company Number: IT-TEVA-765037ACC

PATIENT
  Age: 17 Year
  Sex: Male

DRUGS (5)
  1. CANNABIS [Concomitant]
     Active Substance: CANNABIS SATIVA SUBSP. INDICA TOP
     Indication: PRODUCT USED FOR UNKNOWN INDICATION
     Route: 065
  2. CLOZAPINE. [Suspect]
     Active Substance: CLOZAPINE
     Indication: DRUG ABUSE
     Route: 048
  3. RIVOTRIL [Suspect]
     Active Substance: CLONAZEPAM
     Indication: DRUG ABUSE
     Route: 048
  4. CARBOLITHIUM ? TEVA ITALIA S.R.L. [Suspect]
     Active Substance: LITHIUM CARBONATE
     Indication: DRUG ABUSE
     Route: 048
  5. ETHYL ALCOHOL [Concomitant]
     Active Substance: ALCOHOL
     Indication: PRODUCT USED FOR UNKNOWN INDICATION
     Route: 065

REACTIONS (2)
  - Drug abuse [Recovering/Resolving]
  - Movement disorder [Recovering/Resolving]

NARRATIVE: CASE EVENT DATE: 20170401
